FAERS Safety Report 14555216 (Version 1)
Quarter: 2018Q1

REPORT INFORMATION
  Report Type: Spontaneous
  Country: US (occurrence: US)
  Receive Date: 20180219
  Receipt Date: 20180219
  Transmission Date: 20180509
  Serious: No
  Sender: FDA-Public Use
  Company Number: None

PATIENT
  Age: 34 Year
  Sex: Female
  Weight: 89.1 kg

DRUGS (3)
  1. MUCINEX SINUS-MAX DAY NIGHT MAXIMUM STRENGTH [Suspect]
     Active Substance: ACETAMINOPHEN\DIPHENHYDRAMINE HYDROCHLORIDE\GUAIFENESIN\PHENYLEPHRINE HYDROCHLORIDE
     Indication: NASAL CONGESTION
     Dosage: ?          QUANTITY:2 CAPSULE(S);?
     Route: 048
  2. MUCINEX SINUS-MAX DAY NIGHT MAXIMUM STRENGTH [Suspect]
     Active Substance: ACETAMINOPHEN\DIPHENHYDRAMINE HYDROCHLORIDE\GUAIFENESIN\PHENYLEPHRINE HYDROCHLORIDE
     Indication: RHINORRHOEA
     Dosage: ?          QUANTITY:2 CAPSULE(S);?
     Route: 048
  3. MUCINEX SINUS-MAX DAY NIGHT MAXIMUM STRENGTH [Suspect]
     Active Substance: ACETAMINOPHEN\DIPHENHYDRAMINE HYDROCHLORIDE\GUAIFENESIN\PHENYLEPHRINE HYDROCHLORIDE
     Indication: SNEEZING
     Dosage: ?          QUANTITY:2 CAPSULE(S);?
     Route: 048

REACTIONS (2)
  - Abdominal pain upper [None]
  - Middle insomnia [None]

NARRATIVE: CASE EVENT DATE: 20180219
